FAERS Safety Report 4302353-1 (Version None)
Quarter: 2004Q1

REPORT INFORMATION
  Report Type: 
  Country: None (occurrence: None)
  Receive Date: 20040220
  Receipt Date: 20040202
  Transmission Date: 20041129
  Serious: Yes (Life-Threatening, Hospitalization)
  Sender: FDA-Public Use
  Company Number: A03200400310

PATIENT
  Age: 26 Year
  Sex: Female

DRUGS (3)
  1. ELOXATIN [Suspect]
     Indication: COLON CANCER
     Dosage: 85 MG/M2 OTHER - INTRAVENOUS NOS
     Route: 042
     Dates: start: 20031103, end: 20031103
  2. LEUCOVORIN [Concomitant]
  3. FLUOROURACIL [Concomitant]

REACTIONS (7)
  - CARDIAC FAILURE ACUTE [None]
  - CARDIOGENIC SHOCK [None]
  - ISCHAEMIC NEUROPATHY [None]
  - MONOPLEGIA [None]
  - PAIN IN EXTREMITY [None]
  - RENAL FAILURE ACUTE [None]
  - RESPIRATORY FAILURE [None]
